FAERS Safety Report 10787435 (Version 2)
Quarter: 2015Q1

REPORT INFORMATION
  Report Type: Spontaneous
  Country: FR (occurrence: FR)
  Receive Date: 20150212
  Receipt Date: 20150218
  Transmission Date: 20150721
  Serious: Yes (Hospitalization)
  Sender: FDA-Public Use
  Company Number: FR-AUROBINDO-AUR-APL-2015-01099

PATIENT
  Age: 82 Year
  Sex: Female

DRUGS (1)
  1. PERINDOPRIL ARROW 4MG [Suspect]
     Active Substance: PERINDOPRIL
     Indication: PRODUCT USED FOR UNKNOWN INDICATION
     Dosage: 4 MG, UNK
     Route: 048
     Dates: start: 20140724, end: 20140901

REACTIONS (7)
  - Loss of consciousness [Unknown]
  - Musculoskeletal stiffness [Unknown]
  - Angioedema [Recovered/Resolved]
  - Malaise [Unknown]
  - Erythema [Unknown]
  - Epilepsy [Unknown]
  - Foaming at mouth [Unknown]

NARRATIVE: CASE EVENT DATE: 20140901
